FAERS Safety Report 14739000 (Version 2)
Quarter: 2018Q2

REPORT INFORMATION
  Report Type: Spontaneous
  Country: US (occurrence: US)
  Receive Date: 20180410
  Receipt Date: 20180423
  Transmission Date: 20180711
  Serious: No
  Sender: FDA-Public Use
  Company Number: US-UNITED THERAPEUTICS-UNT-2018-003445

PATIENT
  Age: 45 Year
  Sex: Female
  Weight: 57.6 kg

DRUGS (5)
  1. ADEMPAS [Concomitant]
     Active Substance: RIOCIGUAT
     Indication: PRODUCT USED FOR UNKNOWN INDICATION
     Route: 065
  2. REMODULIN [Suspect]
     Active Substance: TREPROSTINIL
     Indication: PULMONARY ARTERIAL HYPERTENSION
  3. REMODULIN [Suspect]
     Active Substance: TREPROSTINIL
     Indication: PULMONARY HYPERTENSION
  4. REMODULIN [Suspect]
     Active Substance: TREPROSTINIL
     Indication: PULMONARY HYPERTENSION
     Dosage: 0.024 ?G/KG, CONTINUING
     Route: 058
     Dates: start: 20180307
  5. COUMADIN [Concomitant]
     Active Substance: WARFARIN SODIUM
     Indication: PRODUCT USED FOR UNKNOWN INDICATION
     Route: 065

REACTIONS (17)
  - Vision blurred [Recovering/Resolving]
  - Abdominal pain upper [Unknown]
  - Rash pruritic [Recovered/Resolved]
  - Dizziness [Unknown]
  - Nausea [Recovered/Resolved]
  - Infusion site pain [Not Recovered/Not Resolved]
  - Constipation [Unknown]
  - Vomiting [Recovered/Resolved]
  - Photophobia [Unknown]
  - Diarrhoea [Unknown]
  - Infusion site haemorrhage [Unknown]
  - Pain in jaw [Not Recovered/Not Resolved]
  - Headache [Recovered/Resolved]
  - Hypotension [Unknown]
  - Infusion site rash [Recovered/Resolved]
  - Product use in unapproved indication [Unknown]
  - Breath sounds abnormal [Unknown]

NARRATIVE: CASE EVENT DATE: 201803
